FAERS Safety Report 5266164-5 (Version None)
Quarter: 2007Q1

REPORT INFORMATION
  Report Type: 
  Country: None (occurrence: None)
  Receive Date: 20070315
  Receipt Date: 20070308
  Transmission Date: 20070707
  Serious: Yes (Other)
  Sender: FDA-Public Use
  Company Number: US-JNJFOC-20070302306

PATIENT
  Sex: Female

DRUGS (5)
  1. CHILDRENS TYLENOL BUBBLEGUM BURST [Suspect]
  2. CHILDRENS TYLENOL BUBBLEGUM BURST [Suspect]
     Indication: ACCIDENTAL EXPOSURE
  3. TYLENOL (GELTAB) [Suspect]
     Route: 048
  4. TYLENOL (GELTAB) [Suspect]
     Indication: ACCIDENTAL EXPOSURE
     Route: 048
  5. DEPAKOTE [Concomitant]

REACTIONS (2)
  - ACCIDENTAL DRUG INTAKE BY CHILD [None]
  - ANALGESIC DRUG LEVEL INCREASED [None]
